FAERS Safety Report 9461943 (Version 1)
Quarter: 2013Q3

REPORT INFORMATION
  Report Type: Spontaneous
  Country: US (occurrence: US)
  Receive Date: 20130816
  Receipt Date: 20130816
  Transmission Date: 20140515
  Serious: No
  Sender: FDA-Public Use
  Company Number: US-BRISTOL-MYERS SQUIBB COMPANY-16903684

PATIENT
  Age: 63 Year
  Sex: Male
  Weight: 115 kg

DRUGS (4)
  1. GLUCOVANCE [Suspect]
  2. DIOVAN HCT [Concomitant]
  3. LABETALOL [Concomitant]
  4. SIMVASTATIN [Concomitant]

REACTIONS (1)
  - Hyperglycaemia [Not Recovered/Not Resolved]
